FAERS Safety Report 6825236-1 (Version None)
Quarter: 2010Q3

REPORT INFORMATION
  Report Type: 
  Country: None (occurrence: None)
  Receive Date: 20100708
  Receipt Date: 20070104
  Transmission Date: 20110219
  Serious: No
  Sender: FDA-Public Use
  Company Number: US-PFIZER INC-2007002260

PATIENT
  Sex: Male
  Weight: 102.06 kg

DRUGS (5)
  1. CHANTIX [Suspect]
     Indication: SMOKING CESSATION THERAPY
     Dates: start: 20061201
  2. ALCOHOL [Suspect]
     Route: 048
     Dates: start: 20061231
  3. LIPITOR [Concomitant]
  4. NAPROSYN [Concomitant]
     Indication: BACK DISORDER
  5. CORTISONE [Concomitant]

REACTIONS (3)
  - ABDOMINAL DISTENSION [None]
  - ERUCTATION [None]
  - VOMITING [None]
